FAERS Safety Report 17005820 (Version 1)
Quarter: 2019Q4

REPORT INFORMATION
  Report Type: Spontaneous
  Country: US (occurrence: US)
  Receive Date: 20191106
  Receipt Date: 20191106
  Transmission Date: 20200122
  Serious: No
  Sender: FDA-Public Use
  Company Number: None

PATIENT
  Age: 54 Year
  Sex: Male
  Weight: 73.35 kg

DRUGS (1)
  1. RITUXIMAB. [Suspect]
     Active Substance: RITUXIMAB
     Indication: DIFFUSE LARGE B-CELL LYMPHOMA STAGE IV
     Dosage: ?          OTHER FREQUENCY:EVERY 3 WEEKS;?
     Route: 042

REACTIONS (2)
  - Dyspnoea [None]
  - Throat tightness [None]

NARRATIVE: CASE EVENT DATE: 20191105
